FAERS Safety Report 25591923 (Version 1)
Quarter: 2025Q3

REPORT INFORMATION
  Report Type: Other
  Country: EU (occurrence: EU)
  Receive Date: 20250722
  Receipt Date: 20250722
  Transmission Date: 20251021
  Serious: Yes (Other)
  Sender: INCYTE
  Company Number: None

PATIENT
  Age: 38 Year

DRUGS (2)
  1. OPZELURA [Suspect]
     Active Substance: RUXOLITINIB PHOSPHATE
     Indication: Vitiligo
     Dosage: APPLICATION EVERY 12 H
  2. DESOGESTREL [Concomitant]
     Active Substance: DESOGESTREL
     Indication: Product used for unknown indication
     Route: 065

REACTIONS (5)
  - Paraesthesia [Recovering/Resolving]
  - Pain [Recovering/Resolving]
  - Tension [Recovering/Resolving]
  - Formication [Recovering/Resolving]
  - Sensitive skin [Recovering/Resolving]
